FAERS Safety Report 13335069 (Version 1)
Quarter: 2017Q1

REPORT INFORMATION
  Report Type: Spontaneous
  Country: US (occurrence: US)
  Receive Date: 20170314
  Receipt Date: 20170314
  Transmission Date: 20170428
  Serious: Yes (Other)
  Sender: FDA-Public Use
  Company Number: US-MYLANLABS-2017M1015652

PATIENT

DRUGS (4)
  1. MESNA. [Suspect]
     Active Substance: MESNA
     Indication: LEIOMYOSARCOMA METASTATIC
     Route: 065
  2. IFOSFAMIDE. [Suspect]
     Active Substance: IFOSFAMIDE
     Indication: LEIOMYOSARCOMA METASTATIC
     Route: 065
  3. IFOSFAMIDE. [Suspect]
     Active Substance: IFOSFAMIDE
     Route: 065
  4. MESNA. [Suspect]
     Active Substance: MESNA
     Route: 065

REACTIONS (2)
  - Neutropenia [Unknown]
  - Neurotoxicity [Recovered/Resolved]
